FAERS Safety Report 8815964 (Version 1)
Quarter: 2012Q4

REPORT INFORMATION
  Report Type: Report from Study
  Country: DE (occurrence: DE)
  Receive Date: 20120928
  Receipt Date: 20120928
  Transmission Date: 20130627
  Serious: Yes (Other)
  Sender: FDA-Public Use
  Company Number: DE-ROCHE-1138366

PATIENT

DRUGS (1)
  1. RANIBIZUMAB [Suspect]
     Indication: TELANGIECTASIA

REACTIONS (1)
  - Transient ischaemic attack [Unknown]
